FAERS Safety Report 5964402-4 (Version None)
Quarter: 2008Q4

REPORT INFORMATION
  Report Type: 
  Country: None (occurrence: None)
  Receive Date: 20081124
  Receipt Date: 20081113
  Transmission Date: 20090506
  Serious: Yes (Life-Threatening, Hospitalization, Other)
  Sender: FDA-Public Use
  Company Number: DE-PFIZER INC-2008097051

PATIENT
  Age: 82 Year
  Sex: Female

DRUGS (15)
  1. LYRICA [Suspect]
     Indication: POLYNEUROPATHY
     Route: 048
     Dates: end: 20080901
  2. OXYGESIC [Suspect]
     Indication: ARTHRALGIA
     Route: 048
     Dates: end: 20080901
  3. NALOXONE/OXYCODONE [Suspect]
     Route: 048
     Dates: start: 20080901
  4. APONAL [Suspect]
     Indication: DEPRESSION
     Route: 048
     Dates: end: 20080901
  5. ANALGESICS [Suspect]
  6. HYPNOTICS AND SEDATIVES [Suspect]
  7. ALL OTHER THERAPEUTIC PRODUCTS [Suspect]
  8. MADOPAR [Concomitant]
  9. SPASMO-URGENIN [Concomitant]
  10. LEVOTHYROXINE SODIUM [Concomitant]
  11. PRAVASTATIN [Concomitant]
  12. ISOSORBIDE MONONITRATE [Concomitant]
  13. CARVEDILOL [Concomitant]
  14. PANTOZOL [Concomitant]
  15. ISCOVER [Concomitant]

REACTIONS (7)
  - DRUG DEPENDENCE [None]
  - DRUG LEVEL INCREASED [None]
  - GRAND MAL CONVULSION [None]
  - HYPOCALCAEMIA [None]
  - RESPIRATORY DISTRESS [None]
  - URINARY TRACT INFECTION [None]
  - WITHDRAWAL SYNDROME [None]
